FAERS Safety Report 18999264 (Version 1)
Quarter: 2021Q1

REPORT INFORMATION
  Report Type: Report from Study
  Country: US (occurrence: US)
  Receive Date: 20210312
  Receipt Date: 20210312
  Transmission Date: 20210420
  Serious: Yes (Other)
  Sender: FDA-Public Use
  Company Number: US-SUN PHARMACEUTICAL INDUSTRIES LTD-2021R1-285443

PATIENT
  Age: 63 Year
  Sex: Female

DRUGS (1)
  1. TRIAMCINOLONE [Suspect]
     Active Substance: TRIAMCINOLONE
     Indication: AGE-RELATED MACULAR DEGENERATION
     Dosage: UNK

REACTIONS (1)
  - Rhegmatogenous retinal detachment [Recovered/Resolved]
